FAERS Safety Report 4811817-3 (Version None)
Quarter: 2005Q4

REPORT INFORMATION
  Report Type: 
  Country: None (occurrence: None)
  Receive Date: 20051026
  Receipt Date: 20051014
  Transmission Date: 20060501
  Serious: Yes (Hospitalization)
  Sender: FDA-Public Use
  Company Number: 2005096147

PATIENT
  Age: 48 Year
  Sex: Female

DRUGS (3)
  1. NEURONTIN [Suspect]
     Indication: NEURALGIA
     Dosage: 1800 MG (600 MG, 3 IN 1 D), ORAL
     Route: 048
     Dates: start: 20040701, end: 20050810
  2. METFORMIN HCL [Concomitant]
  3. PRANDIN [Concomitant]

REACTIONS (3)
  - BONE DISORDER [None]
  - DIABETIC FOOT [None]
  - ECONOMIC PROBLEM [None]
